FAERS Safety Report 18560543 (Version 1)
Quarter: 2020Q4

REPORT INFORMATION
  Report Type: Spontaneous
  Country: US (occurrence: US)
  Receive Date: 20201130
  Receipt Date: 20201130
  Transmission Date: 20210114
  Serious: Yes (Other)
  Sender: FDA-Public Use
  Company Number: US-PURDUE-USA-2020-0178582

PATIENT
  Sex: Male

DRUGS (8)
  1. OXYCODONE HCL CR TABLETS (SIMILAR TO NDA 22-272) [Suspect]
     Active Substance: OXYCODONE HYDROCHLORIDE
     Indication: PAIN
     Dosage: UNK
     Route: 048
  2. NORCO [Suspect]
     Active Substance: ACETAMINOPHEN\HYDROCODONE BITARTRATE
     Indication: PAIN
     Dosage: 10-325 MG, 1-2 TABLETS, Q4H PRN
     Route: 065
  3. OXYCODONE HCL TABLETS (RHODES 91-490) [Suspect]
     Active Substance: OXYCODONE HYDROCHLORIDE
     Dosage: 30 MG, QID
     Route: 048
  4. HYDROCODONE BITARTRATE AND ACETAMINOPHEN [Suspect]
     Active Substance: ACETAMINOPHEN\HYDROCODONE BITARTRATE
     Indication: PAIN
     Dosage: UNK
     Route: 048
  5. TRAMADOL. [Suspect]
     Active Substance: TRAMADOL
     Indication: PAIN
     Dosage: UNK
     Route: 065
  6. PERCOCET [Suspect]
     Active Substance: ACETAMINOPHEN\OXYCODONE HYDROCHLORIDE
     Indication: PAIN
     Dosage: 10-325 MG, 1 TABLET, Q6H
     Route: 065
  7. OXYCODONE HCL TABLETS (RHODES 91-490) [Suspect]
     Active Substance: OXYCODONE HYDROCHLORIDE
     Indication: PAIN
     Dosage: 10 MG, Q4H PRN, 1-2 TABLETS
     Route: 048
  8. OXYCODONE/ ACETAMINOPHEN TABLETS [Suspect]
     Active Substance: ACETAMINOPHEN\OXYCODONE HYDROCHLORIDE
     Indication: PAIN
     Dosage: UNK
     Route: 048

REACTIONS (7)
  - Emotional distress [Unknown]
  - Depression [Unknown]
  - Antisocial behaviour [Unknown]
  - Mental disorder [Unknown]
  - Pain [Unknown]
  - Mental impairment [Unknown]
  - Drug dependence [Unknown]
